FAERS Safety Report 5202229-1 (Version None)
Quarter: 2007Q1

REPORT INFORMATION
  Report Type: 
  Country: None (occurrence: None)
  Receive Date: 20070109
  Receipt Date: 20070103
  Transmission Date: 20070707
  Serious: Yes (Death)
  Sender: FDA-Public Use
  Company Number: IL-NOVOPROD-259700

PATIENT
  Age: 43 Year
  Sex: Male
  Weight: 80 kg

DRUGS (1)
  1. NOVOSEVEN [Suspect]
     Indication: CEREBRAL HAEMORRHAGE
     Dosage: 6 MG, SINGLE
     Route: 042

REACTIONS (7)
  - BLOOD PRESSURE INCREASED [None]
  - BRADYCARDIA [None]
  - CEREBRAL INFARCTION [None]
  - COMA [None]
  - GASTRIC HAEMORRHAGE [None]
  - INTRACRANIAL PRESSURE INCREASED [None]
  - MYDRIASIS [None]
